FAERS Safety Report 5922966-0 (Version None)
Quarter: 2008Q4

REPORT INFORMATION
  Report Type: 
  Country: None (occurrence: None)
  Receive Date: 20081018
  Receipt Date: 20081009
  Transmission Date: 20090506
  Serious: Yes (Hospitalization)
  Sender: FDA-Public Use
  Company Number: FR-PFIZER INC-2008069830

PATIENT
  Age: 61 Year
  Sex: Female
  Weight: 62 kg

DRUGS (1)
  1. SALAZOPYRINE [Suspect]
     Indication: RHEUMATOID ARTHRITIS
     Route: 048
     Dates: start: 20080630, end: 20080101

REACTIONS (3)
  - AGRANULOCYTOSIS [None]
  - PYREXIA [None]
  - SKIN REACTION [None]
